FAERS Safety Report 21760125 (Version 1)
Quarter: 2022Q4

REPORT INFORMATION
  Report Type: Spontaneous
  Country: HR (occurrence: HR)
  Receive Date: 20221221
  Receipt Date: 20221221
  Transmission Date: 20230112
  Serious: Yes (Hospitalization, Other)
  Sender: FDA-Public Use
  Company Number: HR-002147023-PHHY2019HR024624

PATIENT
  Age: 40 Year
  Sex: Male

DRUGS (11)
  1. CLOZAPINE [Suspect]
     Active Substance: CLOZAPINE
     Indication: Psychotic symptom
     Dosage: 350 MILLIGRAM, QD
     Route: 065
  2. CLOZAPINE [Suspect]
     Active Substance: CLOZAPINE
     Indication: Schizophrenia
  3. DIAZEPAM [Suspect]
     Active Substance: DIAZEPAM
     Indication: Schizophrenia
     Dosage: 30 MILLIGRAM, QD
     Route: 065
  4. HALOPERIDOL [Suspect]
     Active Substance: HALOPERIDOL
     Indication: Schizophrenia
     Dosage: 30 MILLIGRAM, QD
     Route: 065
  5. PROMAZINE [Suspect]
     Active Substance: PROMAZINE
     Indication: Schizophrenia
     Dosage: 300 MILLIGRAM, QD
     Route: 065
  6. HALOPERIDOL [Concomitant]
     Active Substance: HALOPERIDOL
     Indication: Psychotic symptom
     Dosage: 30 MILLIGRAM, QD
     Route: 065
  7. PROMAZINE [Concomitant]
     Active Substance: PROMAZINE
     Indication: Psychotic symptom
     Dosage: 300 MILLIGRAM, QD
     Route: 065
  8. PROPRANOLOL [Concomitant]
     Active Substance: PROPRANOLOL HYDROCHLORIDE
     Dosage: 40 MILLIGRAM, QD
     Route: 065
  9. ATROPINE [Concomitant]
     Active Substance: ATROPINE
     Indication: Premedication
     Dosage: UNK
     Route: 065
  10. PROPOFOL [Concomitant]
     Active Substance: PROPOFOL
     Indication: Premedication
     Dosage: UNK
     Route: 065
  11. SUCCINYLCHOLINE [Concomitant]
     Active Substance: SUCCINYLCHOLINE
     Indication: Premedication
     Dosage: UNK
     Route: 065

REACTIONS (3)
  - Stress cardiomyopathy [Recovered/Resolved]
  - Tachycardia [Recovered/Resolved]
  - Drug ineffective [Unknown]
